FAERS Safety Report 20048393 (Version 1)
Quarter: 2021Q4

REPORT INFORMATION
  Report Type: Spontaneous
  Country: US (occurrence: US)
  Receive Date: 20211109
  Receipt Date: 20211109
  Transmission Date: 20220303
  Serious: Yes (Hospitalization)
  Sender: FDA-Public Use
  Company Number: US-NOVARTISPH-NVSC2021US254518

PATIENT
  Age: 51 Year
  Sex: Male

DRUGS (2)
  1. RANITIDINE [Suspect]
     Active Substance: RANITIDINE
     Indication: Irritable bowel syndrome
     Dosage: 25 MG, QD
     Route: 048
     Dates: start: 200012, end: 200912
  2. RANITIDINE [Suspect]
     Active Substance: RANITIDINE
     Indication: Irritable bowel syndrome
     Dosage: 25 MG, QD
     Route: 048
     Dates: start: 200012, end: 200912

REACTIONS (2)
  - Prostate cancer stage III [Unknown]
  - Product use in unapproved indication [Unknown]

NARRATIVE: CASE EVENT DATE: 20120705
